FAERS Safety Report 15274781 (Version 1)
Quarter: 2018Q3

REPORT INFORMATION
  Report Type: Spontaneous
  Country: GB (occurrence: GB)
  Receive Date: 20180814
  Receipt Date: 20180814
  Transmission Date: 20181010
  Serious: Yes (Hospitalization)
  Sender: FDA-Public Use
  Company Number: GB-TEVA-2018-GB-939805

PATIENT
  Age: 35 Year
  Sex: Female

DRUGS (1)
  1. CICLOSPORIN [Suspect]
     Active Substance: CYCLOSPORINE
     Indication: PSORIASIS
     Dosage: 200 MILLIGRAM DAILY; 100 MG, BID
     Route: 065

REACTIONS (4)
  - Back pain [Unknown]
  - Chest discomfort [Unknown]
  - Malaise [Unknown]
  - Nausea [Unknown]
